FAERS Safety Report 8790164 (Version 1)
Quarter: 2012Q4

REPORT INFORMATION
  Report Type: 
  Country: US (occurrence: US)
  Receive Date: 20120914
  Receipt Date: 20120914
  Transmission Date: 20130627
  Serious: Yes (Death)
  Sender: FDA-Public Use
  Company Number: US-ASTELLAS-2012US007801

PATIENT
  Sex: Female

DRUGS (2)
  1. PROGRAF [Suspect]
     Indication: RENAL TRANSPLANT
     Dosage: 2 mg, bid
     Route: 048
     Dates: start: 20031020, end: 20120628
  2. MYCOPHENOLATE [Concomitant]
     Indication: RENAL TRANSPLANT
     Dosage: 750 mg, bid
     Route: 048
     Dates: start: 20031020, end: 20120628

REACTIONS (1)
  - Death [Fatal]
